FAERS Safety Report 9565438 (Version 2)
Quarter: 2013Q4

REPORT INFORMATION
  Report Type: Spontaneous
  Country: US (occurrence: US)
  Receive Date: 20130930
  Receipt Date: 20131025
  Transmission Date: 20140711
  Serious: Yes (Hospitalization, Other)
  Sender: FDA-Public Use
  Company Number: US-MERCK-1309USA013229

PATIENT
  Age: 62 Year
  Sex: Female

DRUGS (2)
  1. JANUVIA [Suspect]
     Dosage: 100 MG, QD
     Route: 048
     Dates: end: 2013
  2. CRESTOR [Concomitant]
     Dosage: DOSE, FREQUENCY UNKNOWN
     Dates: end: 2013

REACTIONS (1)
  - Cholangiocarcinoma [Unknown]
